FAERS Safety Report 17042727 (Version 2)
Quarter: 2020Q1

REPORT INFORMATION
  Report Type: Report from Study
  Country: DE (occurrence: DE)
  Receive Date: 20191118
  Receipt Date: 20200114
  Transmission Date: 20200409
  Serious: Yes (Hospitalization, Other)
  Sender: FDA-Public Use
  Company Number: NVSC2019DE038867

PATIENT
  Age: 54 Year
  Sex: Female

DRUGS (1)
  1. COSENTYX [Suspect]
     Active Substance: SECUKINUMAB
     Indication: PSORIASIS
     Dosage: 300 MG (2 X 150)
     Route: 058
     Dates: start: 20160914

REACTIONS (2)
  - Headache [Recovered/Resolved]
  - Meningioma [Recovered/Resolved]

NARRATIVE: CASE EVENT DATE: 201907
